FAERS Safety Report 11591810 (Version 1)
Quarter: 2015Q4

REPORT INFORMATION
  Report Type: Spontaneous
  Country: US (occurrence: US)
  Receive Date: 20151005
  Receipt Date: 20151005
  Transmission Date: 20160304
  Serious: Yes (Hospitalization)
  Sender: FDA-Public Use
  Company Number: US-BEH-2015054275

PATIENT
  Sex: Male
  Weight: 110 kg

DRUGS (1)
  1. ZEMAIRA [Suspect]
     Active Substance: .ALPHA.1-PROTEINASE INHIBITOR HUMAN
     Indication: ALPHA-1 ANTI-TRYPSIN DEFICIENCY
     Dosage: STARTED IN 2008
     Route: 042

REACTIONS (4)
  - Sepsis [Not Recovered/Not Resolved]
  - Pyrexia [Unknown]
  - Septic shock [Unknown]
  - Pain in extremity [Unknown]
